FAERS Safety Report 15922348 (Version 29)
Quarter: 2020Q4

REPORT INFORMATION
  Report Type: Spontaneous
  Country: CA (occurrence: CA)
  Receive Date: 20190206
  Receipt Date: 20201202
  Transmission Date: 20210113
  Serious: Yes (Hospitalization, Other)
  Sender: FDA-Public Use
  Company Number: CA-CELLTRION INC.-2019CA018486

PATIENT

DRUGS (22)
  1. INFLECTRA [Suspect]
     Active Substance: INFLIXIMAB-DYYB
     Dosage: 300 MG, 0, 4, 6, THEN EVERY 8 WEEKS
     Route: 042
     Dates: start: 20190529
  2. INFLECTRA [Suspect]
     Active Substance: INFLIXIMAB-DYYB
     Dosage: 5 MG/KG, (ROUND UP) EVERY 6 WEEKS
     Route: 042
     Dates: start: 20201120
  3. OLANZAPINE. [Concomitant]
     Active Substance: OLANZAPINE
     Dosage: UNK
     Route: 065
  4. INFLECTRA [Suspect]
     Active Substance: INFLIXIMAB-DYYB
     Indication: CROHN^S DISEASE
     Dosage: 5 MG/KG, (ROUND UP) 0, 2, 6, THEN EVERY 8 WEEKS
     Route: 042
     Dates: start: 20190101
  5. INFLECTRA [Suspect]
     Active Substance: INFLIXIMAB-DYYB
     Dosage: 300 MG, 0, 4, 6, THEN EVERY 8 WEEKS
     Route: 042
     Dates: start: 20190129
  6. INFLECTRA [Suspect]
     Active Substance: INFLIXIMAB-DYYB
     Dosage: 300 MG, EVERY 0, 4, 6 WEEKS, THEN EVERY 8 WEEKS)
     Route: 042
     Dates: start: 20190320
  7. INFLECTRA [Suspect]
     Active Substance: INFLIXIMAB-DYYB
     Dosage: 5 MG/KG, AT 0, 2, 6 WEEKS, THEN EVERY 8 WEEKS
     Route: 042
     Dates: start: 20190924
  8. INFLECTRA [Suspect]
     Active Substance: INFLIXIMAB-DYYB
     Dosage: 5 MG/KG, AT 0, 2, 6 WEEKS, THEN EVERY 8 WEEKS
     Route: 042
     Dates: start: 20191118
  9. INFLECTRA [Suspect]
     Active Substance: INFLIXIMAB-DYYB
     Dosage: 5 MG/KG, AT 0, 2, 6 WEEKS, THEN EVERY 8 WEEKS
     Route: 042
     Dates: start: 20200310
  10. INFLECTRA [Suspect]
     Active Substance: INFLIXIMAB-DYYB
     Dosage: 5 MG/KG, AT 0, 2, 6 WEEKS, THEN EVERY 8 WEEKS
     Route: 042
     Dates: start: 20200505, end: 20200505
  11. INFLECTRA [Suspect]
     Active Substance: INFLIXIMAB-DYYB
     Dosage: 5 MG/KG, (ROUND UP) EVERY 6 WEEKS
     Route: 042
     Dates: start: 20201008
  12. INFLECTRA [Suspect]
     Active Substance: INFLIXIMAB-DYYB
     Dosage: 5 MG/KG,  (ROUND UP) EVERY 6 WEEKS
     Route: 042
     Dates: start: 20200715
  13. VALACYCLOVIR [Concomitant]
     Active Substance: VALACYCLOVIR HYDROCHLORIDE
     Indication: CYTOMEGALOVIRUS COLITIS
     Dosage: UNK
     Route: 065
  14. PREDNISONE. [Concomitant]
     Active Substance: PREDNISONE
     Indication: ANXIETY DISORDER
     Dosage: X 56 DAYS,IN DECREASING DOSES
     Route: 065
     Dates: start: 20190101, end: 2019
  15. PANTOLOC [Concomitant]
     Active Substance: PANTOPRAZOLE SODIUM
     Dosage: UNK, 1X/DAY
     Route: 048
  16. LACTAID [Concomitant]
     Active Substance: LACTASE
     Dosage: UNK
     Route: 065
  17. INFLECTRA [Suspect]
     Active Substance: INFLIXIMAB-DYYB
     Dosage: 5 MG/KG, AT 0, 2, 6 WEEKS, THEN EVERY 8 WEEKS
     Route: 042
     Dates: start: 20190729
  18. GANCICLOVIR. [Concomitant]
     Active Substance: GANCICLOVIR
     Indication: CYTOMEGALOVIRUS COLITIS
     Dosage: UNK
     Route: 065
  19. INFLECTRA [Suspect]
     Active Substance: INFLIXIMAB-DYYB
     Dosage: 300 MG, 0, 4, 6, THEN EVERY 8 WEEKS
     Dates: start: 20190529
  20. INFLECTRA [Suspect]
     Active Substance: INFLIXIMAB-DYYB
     Dosage: 5 MG/KG, AT 0, 2, 6 WEEKS, THEN EVERY 8 WEEKS
     Route: 042
     Dates: start: 20200113
  21. INFLECTRA [Suspect]
     Active Substance: INFLIXIMAB-DYYB
     Dosage: 5 MG/KG, (ROUND UP) EVERY 6 WEEKS
     Route: 042
     Dates: start: 20200828
  22. IRON [Concomitant]
     Active Substance: IRON
     Dosage: UNK

REACTIONS (32)
  - Pyelonephritis [Unknown]
  - Influenza [Recovered/Resolved]
  - Aphthous ulcer [Unknown]
  - Anal fissure [Not Recovered/Not Resolved]
  - Kidney infection [Unknown]
  - Drug level decreased [Unknown]
  - Chest pain [Unknown]
  - Inappropriate schedule of product administration [Unknown]
  - Body temperature increased [Unknown]
  - Vomiting [Unknown]
  - Abdominal discomfort [Unknown]
  - Mouth ulceration [Unknown]
  - Gastrointestinal haemorrhage [Unknown]
  - Nausea [Unknown]
  - Urinary tract infection [Recovered/Resolved]
  - Pain [Unknown]
  - Off label use [Unknown]
  - Nephrolithiasis [Unknown]
  - Exposure to SARS-CoV-2 [Unknown]
  - Headache [Recovering/Resolving]
  - Pyrexia [Recovered/Resolved]
  - Pyrexia [Unknown]
  - Intentional product use issue [Unknown]
  - Migraine [Not Recovered/Not Resolved]
  - Off label use [Unknown]
  - Mental disorder [Unknown]
  - Condition aggravated [Unknown]
  - Iron deficiency anaemia [Unknown]
  - Vaginal infection [Not Recovered/Not Resolved]
  - Abdominal pain [Not Recovered/Not Resolved]
  - Aphonia [Unknown]
  - Fatigue [Unknown]

NARRATIVE: CASE EVENT DATE: 20190129
